FAERS Safety Report 5029603-0 (Version None)
Quarter: 2006Q2

REPORT INFORMATION
  Report Type: 
  Country: None (occurrence: None)
  Receive Date: 20060503
  Receipt Date: 20060314
  Transmission Date: 20061013
  Serious: No
  Sender: FDA-Public Use
  Company Number: FACT0600167

PATIENT
  Age: 60 Year
  Sex: Female
  Weight: 74.4 kg

DRUGS (7)
  1. FACTIVE [Suspect]
     Indication: RESPIRATORY TRACT INFECTION BACTERIAL
     Dosage: 320 MG, QD, ORAL
     Route: 048
     Dates: start: 20060111, end: 20060115
  2. LIPITOR [Concomitant]
  3. DILANTIN [Concomitant]
  4. LASIX [Concomitant]
  5. ACCUPRIL [Concomitant]
  6. PROPRANOLOL [Concomitant]
  7. ZETIA [Concomitant]

REACTIONS (1)
  - CLOSTRIDIUM COLITIS [None]
